FAERS Safety Report 6235421-8 (Version None)
Quarter: 2009Q2

REPORT INFORMATION
  Report Type: 
  Country: None (occurrence: None)
  Receive Date: 20090616
  Receipt Date: 20090602
  Transmission Date: 20091009
  Serious: Yes (Hospitalization, Other)
  Sender: FDA-Public Use
  Company Number: 2009AL003775

PATIENT
  Age: 51 Year
  Sex: Male

DRUGS (5)
  1. METFORMIN HCL [Suspect]
     Indication: DIABETES MELLITUS
     Dosage: 850 MG; PO
     Route: 048
     Dates: start: 20090325
  2. VILDAGLIPTIN [Concomitant]
  3. GLIMEPIRIDE [Concomitant]
  4. ATORVASTATIN [Concomitant]
  5. ACETYLSALICYLIC ACID SRT [Concomitant]

REACTIONS (2)
  - DRUG ADMINISTRATION ERROR [None]
  - HYPOGLYCAEMIA [None]
